FAERS Safety Report 22230460 (Version 1)
Quarter: 2023Q2

REPORT INFORMATION
  Report Type: Spontaneous
  Country: CN (occurrence: None)
  Receive Date: 20230419
  Receipt Date: 20230419
  Transmission Date: 20230721
  Serious: Yes (Other)
  Sender: FDA-Public Use
  Company Number: CN-ROCHE-3334188

PATIENT
  Age: 55 Year
  Sex: Female
  Weight: 52 kg

DRUGS (4)
  1. DOCETAXEL [Suspect]
     Active Substance: DOCETAXEL
     Indication: Invasive breast carcinoma
     Route: 041
     Dates: start: 20221101
  2. PERJETA [Suspect]
     Active Substance: PERTUZUMAB
     Indication: Invasive breast carcinoma
     Route: 041
     Dates: start: 20221101
  3. CARBOPLATIN [Suspect]
     Active Substance: CARBOPLATIN
     Indication: Invasive breast carcinoma
     Route: 041
     Dates: start: 20221101
  4. HERCEPTIN [Suspect]
     Active Substance: TRASTUZUMAB
     Indication: Invasive breast carcinoma
     Route: 041
     Dates: start: 20221101

REACTIONS (1)
  - Myelosuppression [Unknown]

NARRATIVE: CASE EVENT DATE: 20221121
